FAERS Safety Report 14699133 (Version 1)
Quarter: 2018Q1

REPORT INFORMATION
  Report Type: Spontaneous
  Country: DE (occurrence: DE)
  Receive Date: 20180330
  Receipt Date: 20180330
  Transmission Date: 20180509
  Serious: Yes (Other)
  Sender: FDA-Public Use
  Company Number: DE-TEVA-2018-DE-872888

PATIENT
  Sex: Female
  Weight: 61 kg

DRUGS (1)
  1. CIPROFLOXACIN-RATIOPHARM 500 MG FILMTABLETTEN [Suspect]
     Active Substance: CIPROFLOXACIN HYDROCHLORIDE
     Route: 065

REACTIONS (17)
  - Polyneuropathy [Unknown]
  - Myalgia [Unknown]
  - Trigeminal neuralgia [Unknown]
  - Osteoarthritis [Unknown]
  - Neuritis [Unknown]
  - Osteochondrosis [Unknown]
  - Bone disorder [Unknown]
  - Vision blurred [Unknown]
  - Tinnitus [Unknown]
  - Cervical radiculopathy [Unknown]
  - Tendon pain [Unknown]
  - Nail dystrophy [Unknown]
  - Dizziness [Unknown]
  - Tendonitis [Unknown]
  - Spinal osteoarthritis [Unknown]
  - Arrhythmia [Unknown]
  - Arthralgia [Unknown]
